FAERS Safety Report 24837542 (Version 2)
Quarter: 2025Q1

REPORT INFORMATION
  Report Type: Report from Study
  Country: US (occurrence: US)
  Receive Date: 20250113
  Receipt Date: 20250207
  Transmission Date: 20250409
  Serious: Yes (Other)
  Sender: Pyros Pharmaceuticals
  Company Number: US-PYROS PHARMACEUTICALS, INC-2024-PYROS-US000143

PATIENT
  Age: 6 Year
  Sex: Male
  Weight: 22.676 kg

DRUGS (9)
  1. VIGAFYDE [Suspect]
     Active Substance: VIGABATRIN
     Indication: Infantile spasms
     Dosage: 250 MG (2.5 ML), BID
     Dates: start: 20241117, end: 2024
  2. VIGAFYDE [Suspect]
     Active Substance: VIGABATRIN
     Dosage: 750 MG (7.5 ML), BID
     Dates: start: 2024, end: 20250102
  3. VIGAFYDE [Suspect]
     Active Substance: VIGABATRIN
     Dosage: 1000 MG (10 ML), BID
     Dates: start: 20250103, end: 20250104
  4. VIGAFYDE [Suspect]
     Active Substance: VIGABATRIN
     Dosage: 1250 MG (12.5 ML), BID
     Dates: start: 20250105, end: 20250106
  5. VIGAFYDE [Suspect]
     Active Substance: VIGABATRIN
     Dosage: 1500 MG (15 ML), BID
     Dates: start: 20250107
  6. CARNITOR [Concomitant]
     Active Substance: LEVOCARNITINE
     Indication: Product used for unknown indication
     Route: 065
  7. LACTULOSE [Concomitant]
     Active Substance: LACTULOSE
     Indication: Product used for unknown indication
     Route: 065
  8. VALPROIC ACID [Concomitant]
     Active Substance: VALPROIC ACID
     Indication: Product used for unknown indication
     Route: 065
  9. ZONISADE [Concomitant]
     Active Substance: ZONISAMIDE
     Indication: Product used for unknown indication
     Route: 065

REACTIONS (4)
  - Seizure [Unknown]
  - Drug ineffective [Unknown]
  - Off label use [Unknown]
  - Off label use [Unknown]

NARRATIVE: CASE EVENT DATE: 20241117
